FAERS Safety Report 6993270-7 (Version None)
Quarter: 2010Q3

REPORT INFORMATION
  Report Type: 
  Country: None (occurrence: None)
  Receive Date: 20100917
  Receipt Date: 20100721
  Transmission Date: 20110219
  Serious: Yes (Other)
  Sender: FDA-Public Use
  Company Number: US-ASTRAZENECA-2007UW11721

PATIENT
  Age: 22282 Day
  Sex: Male
  Weight: 81.6 kg

DRUGS (5)
  1. SEROQUEL [Suspect]
     Indication: DEPRESSION
     Route: 048
     Dates: start: 19990112, end: 20050117
  2. RISPERDAL [Concomitant]
     Dates: start: 20000103, end: 20011208
  3. ZYPREXA [Concomitant]
     Dates: start: 19980818, end: 20000103
  4. ZOLOFT [Concomitant]
  5. ATIVAN [Concomitant]

REACTIONS (3)
  - ERECTILE DYSFUNCTION [None]
  - TYPE 2 DIABETES MELLITUS [None]
  - WEIGHT INCREASED [None]
